FAERS Safety Report 6641085-1 (Version None)
Quarter: 2010Q1

REPORT INFORMATION
  Report Type: 
  Country: None (occurrence: None)
  Receive Date: 20100318
  Receipt Date: 20091117
  Transmission Date: 20100710
  Serious: No
  Sender: FDA-Public Use
  Company Number: US-ASTRAZENECA-2009SE26972

PATIENT
  Sex: Male

DRUGS (2)
  1. ZESTRIL [Suspect]
     Route: 048
  2. PLENDIL [Suspect]
     Route: 048

REACTIONS (1)
  - HYPERTENSION [None]
